FAERS Safety Report 4827331-5 (Version None)
Quarter: 2005Q4

REPORT INFORMATION
  Report Type: 
  Country: None (occurrence: None)
  Receive Date: 20051014
  Receipt Date: 20050831
  Transmission Date: 20060501
  Serious: No
  Sender: FDA-Public Use
  Company Number: 2005SP002591

PATIENT
  Age: 31 Year
  Sex: Female
  Weight: 86.1834 kg

DRUGS (5)
  1. LUNESTA [Suspect]
     Indication: SLEEP DISORDER
     Dosage: 3 MG; HS; ORAL
     Route: 048
     Dates: start: 20050829, end: 20050830
  2. TRAMADOL HCL [Concomitant]
  3. ORTHO TRI-CYCLEN LO [Concomitant]
  4. LORATADINE [Concomitant]
  5. FLONASE [Concomitant]

REACTIONS (8)
  - DYSGEUSIA [None]
  - HEART RATE INCREASED [None]
  - NERVOUSNESS [None]
  - PARAESTHESIA ORAL [None]
  - PRURITUS [None]
  - RASH [None]
  - RESTLESSNESS [None]
  - TONGUE COATED [None]
